FAERS Safety Report 21656483 (Version 1)
Quarter: 2022Q4

REPORT INFORMATION
  Report Type: Spontaneous
  Country: US (occurrence: US)
  Receive Date: 20221129
  Receipt Date: 20221129
  Transmission Date: 20230113
  Serious: No
  Sender: FDA-Public Use
  Company Number: US-TEVA-2022-US-2827047

PATIENT
  Sex: Female

DRUGS (1)
  1. BUPROPION HYDROCHLORIDE [Suspect]
     Active Substance: BUPROPION HYDROCHLORIDE
     Indication: Depression
     Dosage: EXTENDED / SUSTAINED RELEASE
     Route: 065
     Dates: start: 20220909, end: 2022

REACTIONS (7)
  - Insomnia [Unknown]
  - Headache [Unknown]
  - Anxiety [Unknown]
  - Paranoia [Unknown]
  - Crying [Unknown]
  - Increased appetite [Unknown]
  - Mood altered [Unknown]

NARRATIVE: CASE EVENT DATE: 20220901
